FAERS Safety Report 19218133 (Version 1)
Quarter: 2021Q2

REPORT INFORMATION
  Report Type: Spontaneous
  Country: US (occurrence: US)
  Receive Date: 20210503
  Receipt Date: 20210503
  Transmission Date: 20210717
  Serious: Yes (Life-Threatening, Disabling, Other)
  Sender: FDA-Public Use
  Company Number: None

PATIENT
  Age: 46 Year
  Sex: Male

DRUGS (1)
  1. RHINO 7 PLATINUM 5000 [Suspect]
     Active Substance: DIETARY SUPPLEMENT\HERBALS
     Dates: start: 20210501, end: 20210501

REACTIONS (5)
  - Pain [None]
  - Chest pain [None]
  - Headache [None]
  - Blood pressure abnormal [None]
  - Hypoacusis [None]

NARRATIVE: CASE EVENT DATE: 20210501
